FAERS Safety Report 25509442 (Version 3)
Quarter: 2025Q3

REPORT INFORMATION
  Report Type: Report from Study
  Country: US (occurrence: US)
  Receive Date: 20250703
  Receipt Date: 20250923
  Transmission Date: 20251020
  Serious: Yes (Hospitalization)
  Sender: SUNOVION
  Company Number: US-SMPA-2025SPA008182

PATIENT
  Age: 71 Year
  Sex: Male

DRUGS (13)
  1. ORGOVYX [Suspect]
     Active Substance: RELUGOLIX
     Indication: Prostate cancer
     Route: 048
  2. ORGOVYX [Suspect]
     Active Substance: RELUGOLIX
     Route: 048
  3. ASPIRIN [Concomitant]
     Active Substance: ASPIRIN
  4. DUTASTERIDE [Concomitant]
     Active Substance: DUTASTERIDE
  5. PRALUENT [Concomitant]
     Active Substance: ALIROCUMAB
  6. PREDNISONE [Concomitant]
     Active Substance: PREDNISONE
  7. PYRIDIUM [Concomitant]
     Active Substance: PHENAZOPYRIDINE
  8. ROSUVASTATIN [Concomitant]
     Active Substance: ROSUVASTATIN
  9. TAMSULOSIN [Concomitant]
     Active Substance: TAMSULOSIN
  10. CALCIUM [Concomitant]
     Active Substance: CALCIUM
  11. LEVOFLOXACIN [Concomitant]
     Active Substance: LEVOFLOXACIN
  12. VITAMIN D [Concomitant]
     Active Substance: VITAMIN D NOS
  13. METOPROLOL [Concomitant]
     Active Substance: METOPROLOL

REACTIONS (5)
  - White blood cell count decreased [Unknown]
  - Tachycardia [Unknown]
  - Lymphoedema [Unknown]
  - Mobility decreased [Unknown]
  - Platelet count decreased [Not Recovered/Not Resolved]
